FAERS Safety Report 14471917 (Version 9)
Quarter: 2018Q2

REPORT INFORMATION
  Report Type: Report from Study
  Country: US (occurrence: US)
  Receive Date: 20180131
  Receipt Date: 20180628
  Transmission Date: 20180711
  Serious: Yes (Other)
  Sender: FDA-Public Use
  Company Number: US-MALLINCKRODT-T201800293

PATIENT
  Age: 81 Year
  Sex: Female

DRUGS (5)
  1. REPOSITORY CORTICOTROPIN INJECTION [Suspect]
     Active Substance: CORTICOTROPIN
     Dosage: 80 UNITS / 1 ML, 2 TIMES PER WEEK (MONDAY AND THURSDAY)
     Route: 058
  2. REPOSITORY CORTICOTROPIN INJECTION [Suspect]
     Active Substance: CORTICOTROPIN
     Dosage: 80 UNITS / 1 ML, ONCE WEEKLY
     Route: 058
  3. REPOSITORY CORTICOTROPIN INJECTION [Suspect]
     Active Substance: CORTICOTROPIN
     Indication: NEPHROTIC SYNDROME
     Dosage: 80 UNITS / 1 ML, 2 TIMES PER WEEK (MONDAY AND THURSDAY)
     Route: 058
     Dates: start: 20180118
  4. REPOSITORY CORTICOTROPIN INJECTION [Suspect]
     Active Substance: CORTICOTROPIN
     Dosage: 80 UNITS/ML, ONCE A WEEK (MONDAY)
     Route: 058
     Dates: start: 20180305
  5. REPOSITORY CORTICOTROPIN INJECTION [Suspect]
     Active Substance: CORTICOTROPIN
     Dosage: 80 UNITS/ML, ONCE A WEEK (MONDAY)
     Route: 058

REACTIONS (13)
  - Asthenia [Not Recovered/Not Resolved]
  - Urine abnormality [Not Recovered/Not Resolved]
  - Eye swelling [Unknown]
  - Fatigue [Not Recovered/Not Resolved]
  - Fluid retention [Unknown]
  - Immune system disorder [Unknown]
  - Nausea [Unknown]
  - Blood glucose increased [Unknown]
  - Thirst [Unknown]
  - Hypertension [Unknown]
  - Feeling abnormal [Unknown]
  - Anaemia [Unknown]
  - Increased appetite [Unknown]

NARRATIVE: CASE EVENT DATE: 201801
